FAERS Safety Report 14740445 (Version 2)
Quarter: 2018Q2

REPORT INFORMATION
  Report Type: Report from Study
  Country: US (occurrence: US)
  Receive Date: 20180410
  Receipt Date: 20180411
  Transmission Date: 20180711
  Serious: No
  Sender: FDA-Public Use
  Company Number: US-ROCHE-2103677

PATIENT
  Sex: Male
  Weight: 70.37 kg

DRUGS (5)
  1. OCREVUS [Suspect]
     Active Substance: OCRELIZUMAB
     Dosage: FULL DOSE- INFUSION ;ONGOING: YES
     Route: 042
     Dates: start: 20180228
  2. BACLOFEN. [Concomitant]
     Active Substance: BACLOFEN
     Indication: MUSCLE SPASTICITY
     Dosage: ONGOING: YES
     Route: 065
  3. OCREVUS [Suspect]
     Active Substance: OCRELIZUMAB
     Indication: PROGRESSIVE MULTIPLE SCLEROSIS
     Dosage: INFUSION ;ONGOING: NO
     Route: 042
     Dates: start: 20170807
  4. MODAFINIL. [Concomitant]
     Active Substance: MODAFINIL
     Indication: FATIGUE
  5. MODAFINIL. [Concomitant]
     Active Substance: MODAFINIL
     Indication: MULTIPLE SCLEROSIS
     Dosage: ONGOING: YES
     Route: 065

REACTIONS (3)
  - Dry mouth [Unknown]
  - Dry throat [Not Recovered/Not Resolved]
  - Urinary tract infection [Recovered/Resolved]
